FAERS Safety Report 8112201-X (Version None)
Quarter: 2012Q1

REPORT INFORMATION
  Report Type: 
  Country: None (occurrence: None)
  Receive Date: 20120131
  Receipt Date: 20120125
  Transmission Date: 20120608
  Serious: Yes (Life-Threatening, Hospitalization, Other)
  Sender: FDA-Public Use
  Company Number: ADR-2012-00183

PATIENT
  Sex: Male

DRUGS (2)
  1. LIORESAL [Suspect]
     Indication: MUSCLE SPASTICITY
     Dosage: 1100 MCG/DAY
     Route: 037
  2. LIORESAL [Suspect]
     Indication: MULTIPLE SCLEROSIS
     Dosage: 1100 MCG/DAY
     Route: 037

REACTIONS (7)
  - PYREXIA [None]
  - COMA [None]
  - DRUG DOSE OMISSION [None]
  - MUSCLE RIGIDITY [None]
  - PNEUMONIA [None]
  - WITHDRAWAL SYNDROME [None]
  - CONVULSION [None]
